FAERS Safety Report 12442728 (Version 1)
Quarter: 2016Q2

REPORT INFORMATION
  Report Type: Report from Study
  Country: BR (occurrence: BR)
  Receive Date: 20160607
  Receipt Date: 20160607
  Transmission Date: 20160815
  Serious: Yes (Other)
  Sender: FDA-Public Use
  Company Number: BR-JNJFOC-20160603443

PATIENT
  Sex: Female

DRUGS (7)
  1. SIMVASTATIN. [Concomitant]
     Active Substance: SIMVASTATIN
     Route: 065
  2. CLONIDINA [Concomitant]
     Route: 065
  3. LEXOTAN [Concomitant]
     Active Substance: BROMAZEPAM
     Route: 065
  4. XARELTO [Concomitant]
     Active Substance: RIVAROXABAN
     Route: 065
  5. PURAN [Concomitant]
     Active Substance: LEVOTHYROXINE SODIUM
     Route: 065
  6. PREDNISONE. [Concomitant]
     Active Substance: PREDNISONE
     Route: 065
  7. SIMPONI [Suspect]
     Active Substance: GOLIMUMAB
     Indication: RHEUMATOID ARTHRITIS
     Route: 058
     Dates: start: 20160426

REACTIONS (1)
  - Urinary tract infection [Unknown]
